FAERS Safety Report 8025198-8 (Version None)
Quarter: 2012Q1

REPORT INFORMATION
  Report Type: 
  Country: None (occurrence: None)
  Receive Date: 20120105
  Receipt Date: 20111223
  Transmission Date: 20120608
  Serious: Yes (Other)
  Sender: FDA-Public Use
  Company Number: TR-GLAXOSMITHKLINE-B0769156A

PATIENT
  Age: 11 Year
  Sex: Male

DRUGS (2)
  1. CEFTRIAXONE [Concomitant]
     Indication: ENCEPHALITIS
     Dosage: 100MGKH PER DAY
     Route: 065
  2. ACYCLOVIR [Suspect]
     Indication: ENCEPHALITIS
     Dosage: 1500MGM2 PER DAY
     Route: 065

REACTIONS (3)
  - TOXICITY TO VARIOUS AGENTS [None]
  - RENAL FAILURE ACUTE [None]
  - OLIGURIA [None]
